FAERS Safety Report 5197461-X (Version None)
Quarter: 2006Q4

REPORT INFORMATION
  Report Type: 
  Country: None (occurrence: None)
  Receive Date: 20060927
  Receipt Date: 20060616
  Transmission Date: 20070319
  Serious: No
  Sender: FDA-Public Use
  Company Number: US-CVT-061332

PATIENT
  Age: 88 Year
  Sex: Female

DRUGS (5)
  1. RANEXA(RANOTAZINE) FILM-COATED TABLET, 500MG [Suspect]
     Indication: ANGINA PECTORIS
     Dosage: 500 MG, BID, ORAL
     Route: 048
     Dates: start: 20060503, end: 20060606
  2. NORVASCON/00972401/ (AMLODIPINE) [Concomitant]
  3. PLAVIX [Concomitant]
  4. IMDUR [Concomitant]
  5. LIPITOR /01326101 (ATORVASTATIN) [Concomitant]

REACTIONS (1)
  - DIARRHOEA [None]
